FAERS Safety Report 8616738-6 (Version None)
Quarter: 2012Q3

REPORT INFORMATION
  Report Type: 
  Country: None (occurrence: None)
  Receive Date: 20120823
  Receipt Date: 20120817
  Transmission Date: 20120928
  Serious: Yes (Death)
  Sender: FDA-Public Use
  Company Number: BR-PFIZER INC-2012192980

PATIENT
  Age: 84 Year
  Sex: Female
  Weight: 49 kg

DRUGS (15)
  1. XALCOM [Suspect]
     Indication: GLAUCOMA
     Dosage: UNK
     Dates: start: 20120306, end: 20120101
  2. DIPYRONE TAB [Concomitant]
     Indication: SPINAL PAIN
     Dosage: UNK
  3. ATORVASTATIN [Concomitant]
     Indication: SPINAL PAIN
  4. TIMOLOL [Concomitant]
     Indication: HYPERTENSION
     Dosage: UNK
     Dates: start: 20120501
  5. LATANOPROST [Suspect]
     Indication: MYOPIA
  6. CENTRUM [Concomitant]
     Indication: DEHYDRATION
     Dosage: ONE TABLET DAILY
     Dates: start: 20110101
  7. DIPIRONA [Concomitant]
     Indication: SPINAL PAIN
     Dosage: UNK
  8. AZOPT [Suspect]
     Indication: MYOPIA
  9. AMIODARONE HYDROCHLORIDE [Concomitant]
     Indication: SPINAL PAIN
  10. DORFLEX [Concomitant]
     Indication: SPINAL PAIN
     Dosage: UNK
  11. LATANOPROST [Suspect]
     Indication: EYE DISORDER
  12. AZOPT [Suspect]
     Indication: GLAUCOMA
     Dosage: DAY AND NIGHT
     Route: 047
     Dates: start: 20120501
  13. LATANOPROST [Suspect]
     Indication: GLAUCOMA
     Dosage: 3 UG, 1X/DAY (ONE DROP EACH EYE ONCE A DAY)
     Route: 047
     Dates: start: 20120501
  14. METOCLOPRAMIDE HYDROCHLORIDE [Concomitant]
     Indication: RETCHING
     Dosage: UNK
  15. AZOPT [Suspect]
     Indication: EYE DISORDER

REACTIONS (3)
  - VISION BLURRED [None]
  - INFARCTION [None]
  - DYSPLASIA [None]
